FAERS Safety Report 15615355 (Version 2)
Quarter: 2018Q4

REPORT INFORMATION
  Report Type: Spontaneous
  Country: FR (occurrence: FR)
  Receive Date: 20181114
  Receipt Date: 20181114
  Transmission Date: 20190205
  Serious: Yes (Hospitalization)
  Sender: FDA-Public Use
  Company Number: FR-TEVA-2018-FR-974878

PATIENT
  Age: 61 Year
  Sex: Male
  Weight: 112.1 kg

DRUGS (8)
  1. MOPRAL 20 MG, COMPRIM? GASTRO-R?SISTANT [Concomitant]
     Active Substance: OMEPRAZOLE
     Route: 065
  2. PYOSTACINE [Concomitant]
     Active Substance: PRISTINAMYCIN
  3. LAROXYL 25 MG, COMPRIM? PELLICUL? [Concomitant]
     Active Substance: AMITRIPTYLINE HYDROCHLORIDE
     Route: 065
  4. METFORMINE [Suspect]
     Active Substance: METFORMIN HYDROCHLORIDE
     Indication: TYPE 2 DIABETES MELLITUS
     Dosage: 1500 MILLIGRAM DAILY;
     Route: 048
     Dates: end: 20180807
  5. ELIQUIS [Concomitant]
     Active Substance: APIXABAN
     Route: 065
  6. JANUVIA [Concomitant]
     Active Substance: SITAGLIPTIN PHOSPHATE
     Route: 065
  7. RAMIPRIL. [Concomitant]
     Active Substance: RAMIPRIL
  8. VIMPAT 200 MG, COMPRIM? PELLICUL? [Concomitant]
     Route: 065

REACTIONS (3)
  - Diabetes mellitus inadequate control [Recovered/Resolved]
  - Hyperlactacidaemia [Recovered/Resolved]
  - Metabolic acidosis [Recovered/Resolved]

NARRATIVE: CASE EVENT DATE: 20180807
